FAERS Safety Report 5781007-9 (Version None)
Quarter: 2008Q2

REPORT INFORMATION
  Report Type: 
  Country: None (occurrence: None)
  Receive Date: 20080620
  Receipt Date: 20080611
  Transmission Date: 20081010
  Serious: Yes (Hospitalization, Other)
  Sender: FDA-Public Use
  Company Number: DE-ABBOTT-08P-062-0457049-00

PATIENT
  Sex: Female
  Weight: 75 kg

DRUGS (4)
  1. HUMIRA [Suspect]
     Indication: CROHN'S DISEASE
     Dosage: INITIAL DOSE
     Route: 058
     Dates: start: 20071022
  2. HUMIRA [Suspect]
     Dosage: WEEK 2
     Route: 058
  3. HUMIRA [Suspect]
     Route: 058
  4. AZATHIOPRINE [Concomitant]
     Indication: CROHN'S DISEASE
     Dosage: 2-2.5 MG/KG, BI-WEEKLY

REACTIONS (4)
  - CROHN'S DISEASE [None]
  - ILEOSTOMY CLOSURE [None]
  - ILEUS [None]
  - URINARY TRACT INFECTION [None]
